FAERS Safety Report 17078576 (Version 3)
Quarter: 2020Q3

REPORT INFORMATION
  Report Type: Spontaneous
  Country: US (occurrence: US)
  Receive Date: 20191127
  Receipt Date: 20200710
  Transmission Date: 20201102
  Serious: Yes (Hospitalization)
  Sender: FDA-Public Use
  Company Number: US-BIOGEN-2019BI00810268

PATIENT
  Sex: Female

DRUGS (2)
  1. TECFIDERA [Suspect]
     Active Substance: DIMETHYL FUMARATE
     Route: 065
  2. TECFIDERA [Suspect]
     Active Substance: DIMETHYL FUMARATE
     Indication: MULTIPLE SCLEROSIS
     Route: 065
     Dates: start: 20150416

REACTIONS (4)
  - Fatigue [Not Recovered/Not Resolved]
  - Disease susceptibility [Unknown]
  - Uterine cancer [Recovered/Resolved]
  - Hereditary non-polyposis colorectal cancer syndrome [Unknown]

NARRATIVE: CASE EVENT DATE: 2019
